FAERS Safety Report 5957326-X (Version None)
Quarter: 2008Q4

REPORT INFORMATION
  Report Type: 
  Country: None (occurrence: None)
  Receive Date: 20081106
  Receipt Date: 20071015
  Transmission Date: 20090506
  Serious: Yes (Death, Other)
  Sender: FDA-Public Use
  Company Number: US200710003147

PATIENT
  Age: 54 Year
  Sex: Male

DRUGS (2)
  1. PROZAC [Suspect]
     Indication: ANXIETY
  2. WELLBUTRIN [Concomitant]

REACTIONS (9)
  - DYSKINESIA [None]
  - FATIGUE [None]
  - FEELING OF BODY TEMPERATURE CHANGE [None]
  - HYPERTHERMIA [None]
  - MUSCLE RIGIDITY [None]
  - MUSCLE TWITCHING [None]
  - SEROTONIN SYNDROME [None]
  - SOMNOLENCE [None]
  - TREMOR [None]
